FAERS Safety Report 10391210 (Version 3)
Quarter: 2014Q4

REPORT INFORMATION
  Report Type: Spontaneous
  Country: US (occurrence: US)
  Receive Date: 20140818
  Receipt Date: 20141111
  Transmission Date: 20150528
  Serious: No
  Sender: FDA-Public Use
  Company Number: US-PFIZER INC-2014227729

PATIENT
  Age: 53 Year
  Sex: Female
  Weight: 80.27 kg

DRUGS (10)
  1. LIPITOR [Suspect]
     Active Substance: ATORVASTATIN CALCIUM
     Indication: BLOOD CHOLESTEROL INCREASED
     Dosage: 40 MG, 1X/DAY(AT NIGHT) (1 QHS)
     Route: 048
     Dates: start: 20140722, end: 20140813
  2. LITHIUM CARBONATE. [Concomitant]
     Active Substance: LITHIUM CARBONATE
     Dosage: (450 MG) 1/2 TAB, 2X/DAY
     Route: 048
  3. VITAMIN D2 [Concomitant]
     Active Substance: ERGOCALCIFEROL
     Dosage: 100000 IU QWK
  4. LEXAPRO [Concomitant]
     Active Substance: ESCITALOPRAM OXALATE
     Dosage: 10 MG, 1X/DAY (1.5 TABS PO QD)
     Route: 048
  5. ATIVAN [Concomitant]
     Active Substance: LORAZEPAM
     Dosage: 1 MG, UNK
  6. URSODIOL. [Concomitant]
     Active Substance: URSODIOL
     Dosage: 900 MG, 1X/DAY 3 TABS QHS
  7. MIRALAX [Concomitant]
     Active Substance: POLYETHYLENE GLYCOL 3350
     Dosage: 17 GRAM/DOSE POWDER, DISPENSE LARGE CONTAINER
     Route: 048
  8. LOVAZA [Concomitant]
     Active Substance: OMEGA-3-ACID ETHYL ESTERS
     Dosage: 4G (1 G, 4 CAPS) A DAY
  9. SYNTHROID [Concomitant]
     Active Substance: LEVOTHYROXINE SODIUM
     Dosage: (25 ?G 1.5 TAB), DAILY
  10. TECFIDERA [Concomitant]
     Active Substance: DIMETHYL FUMARATE
     Dosage: 240 MG, 2X/DAY (1 BID)

REACTIONS (5)
  - Fatigue [Unknown]
  - Vitamin B12 deficiency [Unknown]
  - Asthenia [Unknown]
  - Drug ineffective [Unknown]
  - Myalgia [Unknown]

NARRATIVE: CASE EVENT DATE: 201407
